FAERS Safety Report 24147011 (Version 2)
Quarter: 2024Q3

REPORT INFORMATION
  Report Type: Spontaneous
  Country: FR (occurrence: FR)
  Receive Date: 20240729
  Receipt Date: 20240930
  Transmission Date: 20241016
  Serious: Yes (Other)
  Sender: SANOFI AVENTIS
  Company Number: FR-SANOFI-02148837

PATIENT
  Age: 63 Year
  Sex: Male
  Weight: 60 kg

DRUGS (4)
  1. RIFAMPIN [Suspect]
     Active Substance: RIFAMPIN
     Indication: Osteomyelitis
     Dosage: UNK
     Dates: start: 2020
  2. RIFAMPIN [Suspect]
     Active Substance: RIFAMPIN
     Indication: Pseudarthrosis
     Dosage: 0.3 MG
     Route: 048
     Dates: start: 20240819
  3. BACTRIM [Concomitant]
     Active Substance: SULFAMETHOXAZOLE\TRIMETHOPRIM
     Dosage: UNK
  4. OFLOXACIN [Concomitant]
     Active Substance: OFLOXACIN
     Dosage: UNK

REACTIONS (2)
  - Toxic skin eruption [Unknown]
  - Drug reaction with eosinophilia and systemic symptoms [Recovered/Resolved]
